FAERS Safety Report 20734452 (Version 1)
Quarter: 2022Q2

REPORT INFORMATION
  Report Type: Spontaneous
  Country: FR (occurrence: FR)
  Receive Date: 20220421
  Receipt Date: 20220421
  Transmission Date: 20220721
  Serious: Yes (Death, Life-Threatening, Hospitalization, Other)
  Sender: FDA-Public Use
  Company Number: FR-AMGEN-FRASP2022065856

PATIENT

DRUGS (6)
  1. TRASTUZUMAB [Suspect]
     Active Substance: TRASTUZUMAB
     Indication: HER2 positive breast cancer
     Route: 065
  2. TRASTUZUMAB [Suspect]
     Active Substance: TRASTUZUMAB
     Indication: HER2 negative breast cancer
  3. TRASTUZUMAB [Suspect]
     Active Substance: TRASTUZUMAB
     Indication: Breast cancer metastatic
  4. PERTUZUMAB [Suspect]
     Active Substance: PERTUZUMAB
     Indication: HER2 positive breast cancer
     Dosage: UNK
     Route: 065
  5. PERTUZUMAB [Suspect]
     Active Substance: PERTUZUMAB
     Indication: HER2 negative breast cancer
  6. PERTUZUMAB [Suspect]
     Active Substance: PERTUZUMAB
     Indication: Breast cancer metastatic

REACTIONS (14)
  - Respiratory distress [Fatal]
  - Unevaluable event [Unknown]
  - Metastases to liver [Unknown]
  - Ill-defined disorder [Unknown]
  - Hyperthermia [Unknown]
  - Skin reaction [Unknown]
  - Hepatic enzyme increased [Unknown]
  - Therapy partial responder [Unknown]
  - Off label use [Unknown]
  - Dyspepsia [Unknown]
  - Pain [Unknown]
  - Hypotension [Unknown]
  - Infusion related reaction [Unknown]
  - Oxygen saturation decreased [Unknown]
